FAERS Safety Report 8345026-0 (Version None)
Quarter: 2012Q2

REPORT INFORMATION
  Report Type: 
  Country: None (occurrence: None)
  Receive Date: 20120508
  Receipt Date: 20120427
  Transmission Date: 20120825
  Serious: Yes (Other)
  Sender: FDA-Public Use
  Company Number: US-ACTELION-A-US2004-05280

PATIENT

DRUGS (13)
  1. TRACLEER [Suspect]
     Dosage: 125 MG, BID
     Route: 048
     Dates: start: 20031218, end: 20040218
  2. POTASSIUM CHLORIDE [Concomitant]
     Dosage: 20 MEQ, QD
  3. TRACLEER [Suspect]
     Dosage: 62.5 MG, BID
     Route: 048
     Dates: start: 20020919, end: 20031217
  4. MICARDIS [Concomitant]
     Dosage: 80 MG, QD
  5. LASIX [Concomitant]
     Dosage: 60 MG, QD
  6. TRACLEER [Suspect]
     Indication: PULMONARY ARTERIAL HYPERTENSION
     Dosage: 62.5 MG, BID
     Route: 048
     Dates: start: 20021001
  7. SYNTHROID [Concomitant]
     Dosage: .1 MG, QD
  8. PREDNISONE TAB [Concomitant]
     Dosage: 5 MG, 3 TIMES A WEEK
  9. COREG [Concomitant]
     Dosage: 6.25 MG, BID
  10. COUMADIN [Concomitant]
  11. DIGOXIN [Concomitant]
     Dosage: .125 MG, QD
  12. RANITIDINE [Concomitant]
     Dosage: 29 UNK, QD
  13. MULTI-VITAMINS [Concomitant]
     Dosage: UNK, QD

REACTIONS (8)
  - ASPARTATE AMINOTRANSFERASE INCREASED [None]
  - ALANINE AMINOTRANSFERASE INCREASED [None]
  - LIVER FUNCTION TEST ABNORMAL [None]
  - BLOOD ALKALINE PHOSPHATASE INCREASED [None]
  - DYSPNOEA [None]
  - HEARING IMPAIRED [None]
  - MACULAR DEGENERATION [None]
  - FATIGUE [None]
